FAERS Safety Report 9547064 (Version 2)
Quarter: 2013Q4

REPORT INFORMATION
  Report Type: Spontaneous
  Country: US (occurrence: None)
  Receive Date: 20130919
  Receipt Date: 20131007
  Transmission Date: 20140711
  Serious: Yes (Death)
  Sender: FDA-Public Use
  Company Number: US-ZYDUS-002214

PATIENT
  Age: 55 Year
  Sex: Female

DRUGS (1)
  1. HYDROXYCHLOROQUINE [Suspect]

REACTIONS (19)
  - Cardiomyopathy [None]
  - Pleural effusion [None]
  - Portal hypertension [None]
  - Varices oesophageal [None]
  - Hepatic neoplasm [None]
  - Hepatic failure [None]
  - Autoimmune hepatitis [None]
  - Liver transplant [None]
  - Atelectasis [None]
  - Renal failure [None]
  - Dialysis [None]
  - Enterococcus test positive [None]
  - Post procedural complication [None]
  - Coronary artery disease [None]
  - Renal artery angioplasty [None]
  - Splenic infarction [None]
  - Endocarditis [None]
  - Chronic hepatic failure [None]
  - Disease recurrence [None]
